FAERS Safety Report 12664639 (Version 1)
Quarter: 2016Q3

REPORT INFORMATION
  Report Type: Spontaneous
  Country: IT (occurrence: IT)
  Receive Date: 20160818
  Receipt Date: 20160818
  Transmission Date: 20161109
  Serious: Yes (Other)
  Sender: FDA-Public Use
  Company Number: PHHY2016IT110576

PATIENT
  Age: 46 Year
  Sex: Female

DRUGS (2)
  1. COTAREG [Suspect]
     Active Substance: HYDROCHLOROTHIAZIDE\VALSARTAN
     Indication: HYPERTENSION
     Dosage: 1 DF, QD (HCT 12.5 MG, VALSARTAN 160 MG)
     Route: 048
     Dates: start: 20160516, end: 20160521
  2. COTAREG [Suspect]
     Active Substance: HYDROCHLOROTHIAZIDE\VALSARTAN
     Dosage: 0.5 DF, QD (HCT 12.5 MG, VALSARTAN 160 MG)
     Route: 048

REACTIONS (5)
  - Hypotension [Recovering/Resolving]
  - Presyncope [Recovering/Resolving]
  - Prescribed overdose [Recovering/Resolving]
  - Gravitational oedema [Recovering/Resolving]
  - Asthenia [Recovering/Resolving]

NARRATIVE: CASE EVENT DATE: 20160521
